FAERS Safety Report 7419173-1 (Version None)
Quarter: 2011Q2

REPORT INFORMATION
  Report Type: 
  Country: None (occurrence: None)
  Receive Date: 20110415
  Receipt Date: 20110413
  Transmission Date: 20111010
  Serious: Yes (Other)
  Sender: FDA-Public Use
  Company Number: AR-PFIZER INC-2011081242

PATIENT
  Age: 2 Year
  Sex: Male
  Weight: 13 kg

DRUGS (2)
  1. PARACETAMOL [Suspect]
     Indication: PYREXIA
     Dosage: UNK
     Dates: start: 20110301, end: 20110301
  2. IBUPIRAC [Suspect]
     Indication: PYREXIA
     Dosage: UNK
     Dates: start: 20110301, end: 20110301

REACTIONS (1)
  - HYPOTHERMIA [None]
